FAERS Safety Report 6279284-3 (Version None)
Quarter: 2009Q3

REPORT INFORMATION
  Report Type: 
  Country: None (occurrence: None)
  Receive Date: 20090723
  Receipt Date: 20081202
  Transmission Date: 20100115
  Serious: No
  Sender: FDA-Public Use
  Company Number: US-AMGEN-KDL312047

PATIENT
  Age: 84 Year
  Sex: Female

DRUGS (7)
  1. PROCRIT [Suspect]
     Indication: MYELODYSPLASTIC SYNDROME
  2. COREG [Concomitant]
  3. HYZAAR [Concomitant]
  4. ASPIRIN [Concomitant]
  5. FEMARA [Concomitant]
  6. HERBAL SUPPLEMENT [Concomitant]
  7. VITAMINS [Concomitant]

REACTIONS (1)
  - THERAPEUTIC RESPONSE DECREASED [None]
